FAERS Safety Report 14015924 (Version 1)
Quarter: 2017Q3

REPORT INFORMATION
  Report Type: Report from Study
  Country: US (occurrence: US)
  Receive Date: 20170927
  Receipt Date: 20170927
  Transmission Date: 20171128
  Serious: Yes (Hospitalization)
  Sender: FDA-Public Use
  Company Number: US-JNJFOC-20170926956

PATIENT
  Age: 77 Year
  Sex: Female

DRUGS (8)
  1. CELEXA [Concomitant]
     Active Substance: CITALOPRAM HYDROBROMIDE
  2. CYANOCOBALAMIN. [Concomitant]
     Active Substance: CYANOCOBALAMIN
  3. FERROUS SULFATE. [Concomitant]
     Active Substance: FERROUS SULFATE
  4. CARAFATE [Concomitant]
     Active Substance: SUCRALFATE
  5. VALSARTAN. [Concomitant]
     Active Substance: VALSARTAN
  6. TRAMADOL. [Concomitant]
     Active Substance: TRAMADOL
  7. IMBRUVICA [Suspect]
     Active Substance: IBRUTINIB
     Indication: CHRONIC LYMPHOCYTIC LEUKAEMIA
     Route: 048
     Dates: start: 20161221
  8. LEVOTHYROXINE SODIUM. [Concomitant]
     Active Substance: LEVOTHYROXINE SODIUM

REACTIONS (3)
  - Haematemesis [Unknown]
  - Loss of consciousness [Unknown]
  - Epistaxis [Unknown]

NARRATIVE: CASE EVENT DATE: 20170815
